FAERS Safety Report 8679937 (Version 2)
Quarter: 2012Q4

REPORT INFORMATION
  Report Type: 
  Country: US (occurrence: US)
  Receive Date: 20120724
  Receipt Date: 20120919
  Transmission Date: 20130627
  Serious: No
  Sender: FDA-Public Use
  Company Number: US-PFIZER INC-2012175461

PATIENT
  Age: 44 Year
  Sex: Female

DRUGS (4)
  1. NEURONTIN [Suspect]
     Dosage: 300 mg, 3x/day
     Route: 048
  2. SYNTHROID [Suspect]
     Dosage: 125 ug, 1x/day
     Route: 048
  3. FLUOXETINE [Suspect]
     Dosage: 20 mg, 1x/day
     Route: 048
  4. VALIUM [Suspect]
     Dosage: 10 mg, 1 up to 3 x daily
     Route: 048

REACTIONS (2)
  - Back pain [Unknown]
  - Impaired work ability [Unknown]
